FAERS Safety Report 4676928-4 (Version None)
Quarter: 2005Q2

REPORT INFORMATION
  Report Type: 
  Country: None (occurrence: None)
  Receive Date: 20050529
  Receipt Date: 20050225
  Transmission Date: 20051028
  Serious: Yes (Hospitalization, Other)
  Sender: FDA-Public Use
  Company Number: CH-ABBOTT-05P-151-0292069-00

PATIENT
  Age: 16 Month
  Sex: Female
  Weight: 9 kg

DRUGS (1)
  1. KLACID I.V. [Suspect]
     Indication: PNEUMONIA BACTERIAL
     Dates: start: 20050224, end: 20050225

REACTIONS (13)
  - AGITATION [None]
  - APPLICATION SITE REACTION [None]
  - BLISTER [None]
  - COMPARTMENT SYNDROME [None]
  - ERYTHEMA [None]
  - EXTRAVASATION [None]
  - INSOMNIA [None]
  - LOCAL SWELLING [None]
  - MEDICATION ERROR [None]
  - NECROSIS [None]
  - OEDEMA PERIPHERAL [None]
  - PAIN [None]
  - RADIAL PULSE ABNORMAL [None]
